FAERS Safety Report 5135978-4 (Version None)
Quarter: 2006Q4

REPORT INFORMATION
  Report Type: 
  Country: None (occurrence: None)
  Receive Date: 20061020
  Receipt Date: 20060918
  Transmission Date: 20070319
  Serious: Yes (Other)
  Sender: FDA-Public Use
  Company Number: S06-FRA-03948-01

PATIENT
  Age: 84 Year
  Sex: Male

DRUGS (6)
  1. EBIXA (MEMANTINE) [Suspect]
     Indication: DEMENTIA ALZHEIMER'S TYPE
     Dosage: 10 MG QD PO
     Route: 048
     Dates: start: 20060412, end: 20060628
  2. EBIXA (MEMANTINE) [Suspect]
     Indication: DEMENTIA ALZHEIMER'S TYPE
     Dosage: 20 MG QD PO
     Route: 048
     Dates: start: 20060629
  3. IKOREL (NICORANDIL) [Concomitant]
  4. ATENOL (ATENOLOL) [Concomitant]
  5. PRAVASTATIN [Concomitant]
  6. EQUANIL [Concomitant]

REACTIONS (4)
  - ESCHERICHIA INFECTION [None]
  - PROSTATIC SPECIFIC ANTIGEN INCREASED [None]
  - PROSTATITIS [None]
  - SEPSIS [None]
